FAERS Safety Report 5912501-5 (Version None)
Quarter: 2008Q4

REPORT INFORMATION
  Report Type: 
  Country: None (occurrence: None)
  Receive Date: 20081006
  Receipt Date: 20080922
  Transmission Date: 20090506
  Serious: Yes (Life-Threatening, Hospitalization)
  Sender: FDA-Public Use
  Company Number: DSJ-2008-09706

PATIENT
  Age: 80 Year
  Sex: Female
  Weight: 40 kg

DRUGS (5)
  1. OLMETEC (OLMESARTAN MEDOXOMIL) (TABLET) (OLMESARTAN MEDOXOMIL) (TABLET [Suspect]
     Indication: HYPERTENSION
     Dosage: 20 MG (20 MG, 1 IN 1 D), PER ORAL; 10 MG (10 MG, 1 IN 1 D), PER ORAL
     Route: 048
     Dates: start: 20050125, end: 20080305
  2. AMLODIN (AMLODIPINE BESILATE) (AMLODINE BESILATE) [Concomitant]
  3. OVULANZE (OMEPRAZOLE) (OMEPRAZOLE) [Concomitant]
  4. MIYA BM [Concomitant]
  5. ULCERLMIN (SUCRALFATE) (SUCRALFATE) [Concomitant]

REACTIONS (3)
  - HYPOGLYCAEMIA [None]
  - SOMNOLENCE [None]
  - SYNCOPE [None]
